FAERS Safety Report 5780379-9 (Version None)
Quarter: 2008Q2

REPORT INFORMATION
  Report Type: 
  Country: None (occurrence: None)
  Receive Date: 20080620
  Receipt Date: 20080612
  Transmission Date: 20081010
  Serious: Yes (Other)
  Sender: FDA-Public Use
  Company Number: FR-ABBOTT-08P-056-0445993-00

PATIENT
  Sex: Female
  Weight: 29 kg

DRUGS (4)
  1. ENANTONE LP [Suspect]
     Indication: PRECOCIOUS PUBERTY
     Route: 058
     Dates: start: 20070820, end: 20071201
  2. ENANTONE LP [Suspect]
  3. ENANTONE LP 11.25 MG [Suspect]
     Indication: PRECOCIOUS PUBERTY
     Route: 058
     Dates: start: 20080107
  4. ENANTONE LP 11.25 MG [Suspect]
     Route: 058
     Dates: start: 20070807, end: 20071207

REACTIONS (5)
  - ERYTHEMA [None]
  - INJECTION SITE ABSCESS [None]
  - INJECTION SITE REACTION [None]
  - NECROTISING FASCIITIS [None]
  - PYREXIA [None]
